FAERS Safety Report 5334257-X (Version None)
Quarter: 2007Q2

REPORT INFORMATION
  Report Type: 
  Country: None (occurrence: None)
  Receive Date: 20070523
  Receipt Date: 20070523
  Transmission Date: 20071010
  Serious: Yes (Other)
  Sender: FDA-Public Use
  Company Number: None

PATIENT
  Age: 60 Year
  Sex: Female
  Weight: 75 kg

DRUGS (1)
  1. ADCO- ZOLPIDEM HEMITARTRATGE 10MG AL PHARMACIES LTD [Suspect]
     Indication: BIPOLAR I DISORDER
     Dates: start: 20060101, end: 20070201

REACTIONS (4)
  - ABNORMAL SLEEP-RELATED EVENT [None]
  - AMNESIA [None]
  - FALL [None]
  - FEELING DRUNK [None]
